FAERS Safety Report 16725631 (Version 1)
Quarter: 2019Q3

REPORT INFORMATION
  Report Type: Spontaneous
  Country: FR (occurrence: FR)
  Receive Date: 20190821
  Receipt Date: 20190821
  Transmission Date: 20191005
  Serious: Yes (Other)
  Sender: FDA-Public Use
  Company Number: FR-TAKEDA-2019TEU009731

PATIENT
  Age: 658 Month
  Sex: Female

DRUGS (2)
  1. IRESSA [Interacting]
     Active Substance: GEFITINIB
     Indication: ADENOCARCINOMA
     Dosage: 250 MILLIGRAM, QD
     Route: 048
     Dates: start: 201901
  2. LANSOPRAZOLE. [Suspect]
     Active Substance: LANSOPRAZOLE
     Indication: PRODUCT USED FOR UNKNOWN INDICATION
     Dosage: UNK UNK, QD
     Route: 065

REACTIONS (6)
  - Dizziness [Unknown]
  - Drug ineffective [Unknown]
  - Metastases to central nervous system [Unknown]
  - Headache [Unknown]
  - Malignant neoplasm progression [Unknown]
  - Drug interaction [Unknown]

NARRATIVE: CASE EVENT DATE: 201906
